FAERS Safety Report 8126062-6 (Version None)
Quarter: 2012Q1

REPORT INFORMATION
  Report Type: 
  Country: None (occurrence: None)
  Receive Date: 20120209
  Receipt Date: 20120130
  Transmission Date: 20120608
  Serious: Yes (Hospitalization)
  Sender: FDA-Public Use
  Company Number: PHEH2011US011203

PATIENT
  Sex: Female
  Weight: 89.4 kg

DRUGS (7)
  1. FUROSEMIDE [Concomitant]
     Indication: OEDEMA
     Dosage: 80 MG, UNK
     Route: 048
  2. METFORMIN HCL [Concomitant]
     Dosage: 500 MG, UNK
     Route: 048
  3. HEPARIN [Suspect]
  4. WARFARIN SODIUM [Concomitant]
  5. GLEEVEC [Suspect]
     Indication: GASTROINTESTINAL STROMAL TUMOUR
     Dosage: 800 MG, QD
     Route: 048
     Dates: start: 20110928, end: 20111114
  6. AMLODIPINE [Concomitant]
     Dosage: 10 MG, UNK
     Route: 048
  7. COZAAR [Concomitant]
     Indication: HYPERTENSION
     Dosage: 50 MG, UNK
     Route: 048

REACTIONS (5)
  - HEPARIN-INDUCED THROMBOCYTOPENIA [None]
  - DRUG INEFFECTIVE [None]
  - NEPHROTIC SYNDROME [None]
  - LACTIC ACIDOSIS [None]
  - RENAL FAILURE ACUTE [None]
